FAERS Safety Report 5903844-X (Version None)
Quarter: 2008Q3

REPORT INFORMATION
  Report Type: 
  Country: None (occurrence: None)
  Receive Date: 20080919
  Receipt Date: 20080820
  Transmission Date: 20090109
  Serious: Yes (Disabling, Other)
  Sender: FDA-Public Use
  Company Number: US-WYE-H05654608

PATIENT
  Age: 38 Year
  Sex: Female
  Weight: 54.93 kg

DRUGS (2)
  1. PRISTIQ [Suspect]
     Indication: FATIGUE
     Dosage: 50 MG 1X PER 1 DAY, ORAL
     Route: 048
     Dates: start: 20080716, end: 20080810
  2. PRISTIQ [Suspect]
     Indication: PAIN
     Dosage: 50 MG 1X PER 1 DAY, ORAL
     Route: 048
     Dates: start: 20080716, end: 20080810

REACTIONS (1)
  - GRAND MAL CONVULSION [None]
